FAERS Safety Report 9887626 (Version 1)
Quarter: 2014Q1

REPORT INFORMATION
  Report Type: Spontaneous
  Country: CH (occurrence: CH)
  Receive Date: 20140211
  Receipt Date: 20140211
  Transmission Date: 20141002
  Serious: Yes (Hospitalization)
  Sender: FDA-Public Use
  Company Number: CH-JNJFOC-20140204817

PATIENT
  Age: 67 Year
  Sex: Male
  Weight: 81 kg

DRUGS (23)
  1. REOPRO [Suspect]
     Indication: CORONARY ARTERIAL STENT INSERTION
     Route: 042
     Dates: start: 20131207, end: 20131207
  2. REOPRO [Suspect]
     Indication: VASCULAR GRAFT
     Route: 042
     Dates: start: 20131207, end: 20131207
  3. EFFIENT [Interacting]
     Indication: CORONARY ARTERIAL STENT INSERTION
     Route: 048
     Dates: start: 20131207, end: 20131207
  4. EFFIENT [Interacting]
     Indication: CORONARY ARTERIAL STENT INSERTION
     Route: 048
     Dates: start: 20131208
  5. EFFIENT [Interacting]
     Indication: VASCULAR GRAFT
     Route: 048
     Dates: start: 20131208
  6. EFFIENT [Interacting]
     Indication: VASCULAR GRAFT
     Route: 048
     Dates: start: 20131207, end: 20131207
  7. ASPEGIC (ACETYLSALICYLATE LYSINE, GLYCINE). [Interacting]
     Indication: CORONARY ARTERIAL STENT INSERTION
     Route: 042
     Dates: start: 20131207, end: 20131207
  8. ASPEGIC (ACETYLSALICYLATE LYSINE, GLYCINE). [Interacting]
     Indication: VASCULAR GRAFT
     Route: 042
     Dates: start: 20131207, end: 20131207
  9. FRAGMIN [Interacting]
     Indication: CORONARY ARTERIAL STENT INSERTION
     Route: 042
     Dates: start: 20131207, end: 20131207
  10. FRAGMIN [Interacting]
     Indication: VASCULAR GRAFT
     Route: 042
     Dates: start: 20131207, end: 20131207
  11. MORPHIN HCL BICHSEL [Concomitant]
     Indication: PRODUCT USED FOR UNKNOWN INDICATION
     Route: 065
     Dates: start: 20131207
  12. AUGMENTIN [Concomitant]
     Indication: PRODUCT USED FOR UNKNOWN INDICATION
     Route: 065
     Dates: start: 20131209, end: 20131214
  13. KLACID (CLARITHROMYCIN) [Concomitant]
     Indication: PRODUCT USED FOR UNKNOWN INDICATION
     Route: 065
     Dates: start: 20131209, end: 20131212
  14. ASPIRIN CARDIO [Concomitant]
     Indication: PRODUCT USED FOR UNKNOWN INDICATION
     Route: 065
  15. ATORVA [Concomitant]
     Indication: PRODUCT USED FOR UNKNOWN INDICATION
     Route: 065
  16. NEBILET [Concomitant]
     Indication: PRODUCT USED FOR UNKNOWN INDICATION
     Route: 065
     Dates: end: 201312
  17. COVERSUM [Concomitant]
     Indication: PRODUCT USED FOR UNKNOWN INDICATION
     Route: 065
     Dates: end: 201312
  18. POTASSIUM CHLORIDE [Concomitant]
     Indication: PRODUCT USED FOR UNKNOWN INDICATION
     Route: 065
     Dates: end: 201312
  19. TOREM [Concomitant]
     Indication: PRODUCT USED FOR UNKNOWN INDICATION
     Route: 065
  20. PHOSPHORIC ACID SODIUM [Concomitant]
     Indication: PRODUCT USED FOR UNKNOWN INDICATION
     Route: 065
  21. MAGNESIUM [Concomitant]
     Indication: PRODUCT USED FOR UNKNOWN INDICATION
     Route: 065
     Dates: end: 201312
  22. DOSPIR [Concomitant]
     Indication: PRODUCT USED FOR UNKNOWN INDICATION
     Route: 065
  23. ARIXTRA [Concomitant]
     Indication: PRODUCT USED FOR UNKNOWN INDICATION
     Route: 065
     Dates: end: 201312

REACTIONS (12)
  - Oxygen saturation decreased [Recovered/Resolved]
  - Haemoptysis [Recovered/Resolved]
  - Reperfusion arrhythmia [Unknown]
  - Lung infiltration [Unknown]
  - Inflammatory marker increased [Unknown]
  - Atypical pneumonia [Unknown]
  - Respiratory failure [Unknown]
  - Pulmonary oedema [Unknown]
  - Emphysema [Unknown]
  - Influenza [Unknown]
  - Pulmonary alveolar haemorrhage [Unknown]
  - Drug interaction [Unknown]
